FAERS Safety Report 5386897-X (Version None)
Quarter: 2007Q3

REPORT INFORMATION
  Report Type: 
  Country: None (occurrence: None)
  Receive Date: 20070713
  Receipt Date: 20070702
  Transmission Date: 20080115
  Serious: Yes (Hospitalization)
  Sender: FDA-Public Use
  Company Number: US-SHR-US-2007-022853

PATIENT
  Age: 53 Year
  Sex: Male

DRUGS (1)
  1. BETASERON [Suspect]
     Dosage: 2 MIU, EVERY 2D
     Route: 058
     Dates: start: 20070604

REACTIONS (1)
  - CHOLECYSTECTOMY [None]
